FAERS Safety Report 4340742-X (Version None)
Quarter: 2004Q2

REPORT INFORMATION
  Report Type: 
  Country: None (occurrence: None)
  Receive Date: 20040414
  Receipt Date: 20040330
  Transmission Date: 20050107
  Serious: Yes (Disabling)
  Sender: FDA-Public Use
  Company Number: 200206324

PATIENT
  Age: 43 Year
  Sex: Female
  Weight: 58.9676 kg

DRUGS (4)
  1. BOTOX [Suspect]
     Indication: MIGRAINE
     Dosage: 92 UNITS PRN IM
     Route: 030
     Dates: start: 20010507
  2. BOTOX [Suspect]
     Indication: SKIN WRINKLING
     Dosage: 92 UNITS PRN IM
     Route: 030
     Dates: start: 20010507
  3. IMITREX [Concomitant]
  4. FIORINAL [Concomitant]

REACTIONS (35)
  - ALLODYNIA [None]
  - APHTHOUS STOMATITIS [None]
  - BEDRIDDEN [None]
  - BREATH ODOUR [None]
  - BRUXISM [None]
  - COGNITIVE DISORDER [None]
  - DISEASE RECURRENCE [None]
  - DRUG TOXICITY [None]
  - DYSGEUSIA [None]
  - FATIGUE [None]
  - FEELING ABNORMAL [None]
  - FIBROMYALGIA [None]
  - FURUNCLE [None]
  - GINGIVAL BLEEDING [None]
  - GINGIVAL DISORDER [None]
  - HEADACHE [None]
  - HERPES SIMPLEX [None]
  - HYPERACUSIS [None]
  - INJECTION SITE DISCOMFORT [None]
  - MIGRAINE [None]
  - MYALGIA [None]
  - NASOPHARYNGITIS [None]
  - NAUSEA [None]
  - PAIN [None]
  - PAIN IN JAW [None]
  - PAROSMIA [None]
  - PHARYNGOLARYNGEAL PAIN [None]
  - PHOTOSENSITIVITY REACTION [None]
  - PIGMENTATION DISORDER [None]
  - SEBORRHOEIC KERATOSIS [None]
  - SENSORY DISTURBANCE [None]
  - TINNITUS [None]
  - TOOTH DISORDER [None]
  - URTICARIA [None]
  - WEIGHT DECREASED [None]
